FAERS Safety Report 6719130-4 (Version None)
Quarter: 2010Q2

REPORT INFORMATION
  Report Type: 
  Country: None (occurrence: None)
  Receive Date: 20100511
  Receipt Date: 20100504
  Transmission Date: 20101027
  Serious: Yes (Hospitalization, Other)
  Sender: FDA-Public Use
  Company Number: SE-ASTRAZENECA-2010SE20284

PATIENT
  Age: 62 Year
  Sex: Female

DRUGS (1)
  1. NOLVADEX [Suspect]
     Route: 048
     Dates: start: 20090101, end: 20100401

REACTIONS (4)
  - ALOPECIA [None]
  - APPENDICITIS PERFORATED [None]
  - DIZZINESS [None]
  - MUSCLE SPASMS [None]
